FAERS Safety Report 7519092-6 (Version None)
Quarter: 2011Q2

REPORT INFORMATION
  Report Type: 
  Country: None (occurrence: None)
  Receive Date: 20110602
  Receipt Date: 20110518
  Transmission Date: 20111010
  Serious: Yes (Other)
  Sender: FDA-Public Use
  Company Number: PHHY2011US40850

PATIENT
  Sex: Female

DRUGS (18)
  1. RECLAST [Suspect]
     Indication: OSTEOPOROSIS
     Dosage: 5 MG ONCE YEARLY
     Route: 042
     Dates: start: 20100515
  2. LEVOTHYROXINE SODIUM [Concomitant]
     Dosage: 100 UG
  3. FOSAMAX [Suspect]
  4. OMEPRAZOLE [Concomitant]
     Dosage: 20 MG
  5. ALBUTEROL SULFATE AUTOHALER [Concomitant]
  6. SIMVASTATIN [Concomitant]
     Dosage: 40 MG
  7. DETROL [Concomitant]
  8. LOVAZA [Concomitant]
  9. VAGIFEM [Concomitant]
  10. CLONAZEPAM [Concomitant]
     Dosage: 0.5 MG, TID
  11. ASPIRIN [Concomitant]
     Dosage: 81 MG
  12. NITROGLYCERIN [Concomitant]
  13. TRAZODONE HCL [Concomitant]
     Dosage: 125 MG
  14. LISINOPRIL [Concomitant]
     Dosage: 40 MG
  15. METOPROLOL TARTRATE [Concomitant]
     Dosage: 50 MG
  16. CALCIUM CITRATE [Concomitant]
  17. PULMICORT [Concomitant]
  18. VITAMIN D [Concomitant]

REACTIONS (13)
  - INFLUENZA LIKE ILLNESS [None]
  - VOMITING [None]
  - NAUSEA [None]
  - BACK PAIN [None]
  - SLUGGISHNESS [None]
  - DYSPEPSIA [None]
  - TOOTH FRACTURE [None]
  - ASTHENIA [None]
  - DIARRHOEA [None]
  - DEHYDRATION [None]
  - MINERAL DEFICIENCY [None]
  - OESOPHAGEAL DISORDER [None]
  - HEADACHE [None]
